FAERS Safety Report 5314223-0 (Version None)
Quarter: 2007Q2

REPORT INFORMATION
  Report Type: 
  Country: None (occurrence: None)
  Receive Date: 20070426
  Receipt Date: 20070411
  Transmission Date: 20071010
  Serious: Yes (Hospitalization)
  Sender: FDA-Public Use
  Company Number: B0466990A

PATIENT
  Age: 39 Year
  Sex: Female

DRUGS (4)
  1. PAROXETINE HCL [Suspect]
     Dosage: ORAL
     Route: 048
  2. HYDROXYCHLOROQUINE (FROMULATION UNKNOWN) (HYDROXYCHLOROQUINE) [Suspect]
     Dosage: ORAL
     Route: 048
  3. BROMAZEPAM  (FROMULATION UNKNOWN) (BROMAZEPAM ) [Suspect]
     Dosage: ORAL
     Route: 048
  4. ZOLPIDEM [Suspect]
     Dosage: ORAL
     Route: 048

REACTIONS (18)
  - BLOOD BICARBONATE DECREASED [None]
  - CARDIOMYOPATHY [None]
  - CIRCULATORY COLLAPSE [None]
  - ELECTROCARDIOGRAM QRS COMPLEX PROLONGED [None]
  - ELECTROCARDIOGRAM QT PROLONGED [None]
  - ELECTROCARDIOGRAM ST SEGMENT DEPRESSION [None]
  - ELECTROCARDIOGRAM T WAVE AMPLITUDE DECREASED [None]
  - HYPERLACTACIDAEMIA [None]
  - HYPOKALAEMIA [None]
  - HYPOTENSION [None]
  - INTENTIONAL OVERDOSE [None]
  - LOSS OF CONSCIOUSNESS [None]
  - METABOLIC ACIDOSIS [None]
  - NODAL ARRHYTHMIA [None]
  - NODAL RHYTHM [None]
  - PROTHROMBIN TIME SHORTENED [None]
  - VENTRICULAR FIBRILLATION [None]
  - VENTRICULAR HYPOKINESIA [None]
